FAERS Safety Report 14467617 (Version 1)
Quarter: 2018Q1

REPORT INFORMATION
  Report Type: Spontaneous
  Country: US (occurrence: US)
  Receive Date: 20180131
  Receipt Date: 20180131
  Transmission Date: 20180509
  Serious: Yes (Life-Threatening, Hospitalization)
  Sender: FDA-Public Use
  Company Number: PHHY2018US008953

PATIENT
  Age: 56 Year
  Sex: Female

DRUGS (1)
  1. METFORMIN [Suspect]
     Active Substance: METFORMIN HYDROCHLORIDE
     Indication: TYPE 2 DIABETES MELLITUS
     Dosage: 4000 MG, QD
     Route: 065

REACTIONS (6)
  - Mental status changes [Recovering/Resolving]
  - Colitis [Unknown]
  - Lactic acidosis [Recovering/Resolving]
  - Respiratory failure [Unknown]
  - Abdominal pain [Unknown]
  - Overdose [Unknown]
